FAERS Safety Report 7861696-5 (Version None)
Quarter: 2011Q4

REPORT INFORMATION
  Report Type: 
  Country: None (occurrence: None)
  Receive Date: 20111027
  Receipt Date: 20110926
  Transmission Date: 20120403
  Serious: Yes (Death, Hospitalization)
  Sender: FDA-Public Use
  Company Number: DE-ROCHE-1000774

PATIENT
  Age: 59 Year
  Sex: Male

DRUGS (4)
  1. FLUOROURACIL [Concomitant]
     Indication: COLON CANCER METASTATIC
     Dates: end: 20110808
  2. IRINOTECAN HCL [Concomitant]
     Indication: COLON CANCER METASTATIC
     Dates: end: 20110808
  3. LEUCOVORIN CALCIUM [Concomitant]
     Indication: COLON CANCER METASTATIC
     Dates: end: 20110808
  4. AVASTIN [Suspect]
     Indication: COLON CANCER METASTATIC
     Dates: end: 20110808

REACTIONS (2)
  - ANASTOMOTIC COMPLICATION [None]
  - SEPSIS [None]
